FAERS Safety Report 18235138 (Version 2)
Quarter: 2020Q3

REPORT INFORMATION
  Report Type: Report from Study
  Country: US (occurrence: US)
  Receive Date: 20200904
  Receipt Date: 20200930
  Transmission Date: 20201103
  Serious: Yes (Other)
  Sender: FDA-Public Use
  Company Number: US-JAZZ-2020-US-000160

PATIENT
  Age: 22 Year
  Sex: Female
  Weight: 66.67 kg

DRUGS (2)
  1. XYREM [Suspect]
     Active Substance: SODIUM OXYBATE
     Indication: NARCOLEPSY
     Dosage: 2.25 G, BID
     Route: 048
     Dates: start: 20200102, end: 202001
  2. XYREM [Suspect]
     Active Substance: SODIUM OXYBATE
     Dosage: 3 G, BID
     Route: 048
     Dates: start: 20200109

REACTIONS (10)
  - Balance disorder [Unknown]
  - Dry mouth [Not Recovered/Not Resolved]
  - Upper-airway cough syndrome [Not Recovered/Not Resolved]
  - Vomiting [Unknown]
  - Choking [Unknown]
  - Weight decreased [Unknown]
  - Candida infection [Recovered/Resolved]
  - Nausea [Unknown]
  - Discomfort [Unknown]
  - Dysphagia [Not Recovered/Not Resolved]

NARRATIVE: CASE EVENT DATE: 202001
